FAERS Safety Report 6750428-X (Version None)
Quarter: 2010Q2

REPORT INFORMATION
  Report Type: 
  Country: None (occurrence: None)
  Receive Date: 20100601
  Receipt Date: 20100519
  Transmission Date: 20101027
  Serious: Yes (Death)
  Sender: FDA-Public Use
  Company Number: CA-ELI_LILLY_AND_COMPANY-CA201005005338

PATIENT

DRUGS (1)
  1. CYMBALTA [Suspect]
     Indication: MAJOR DEPRESSION

REACTIONS (2)
  - DEATH [None]
  - RENAL FUNCTION TEST ABNORMAL [None]
